FAERS Safety Report 5049367-4 (Version None)
Quarter: 2006Q3

REPORT INFORMATION
  Report Type: 
  Country: None (occurrence: None)
  Receive Date: 20060712
  Receipt Date: 20060703
  Transmission Date: 20061208
  Serious: Yes (Other)
  Sender: FDA-Public Use
  Company Number: JP-JPN-A200602471

PATIENT
  Sex: Male

DRUGS (1)
  1. ZOVIRAX [Suspect]
     Indication: KERATITIS HERPETIC
     Route: 047

REACTIONS (3)
  - CORNEAL EPITHELIUM DISORDER [None]
  - IRIS DISORDER [None]
  - OEDEMA [None]
